FAERS Safety Report 17145568 (Version 1)
Quarter: 2019Q4

REPORT INFORMATION
  Report Type: Spontaneous
  Country: US (occurrence: US)
  Receive Date: 20191212
  Receipt Date: 20191212
  Transmission Date: 20200122
  Serious: No
  Sender: FDA-Public Use
  Company Number: US-HORIZON-VIM-0399-2019

PATIENT
  Age: 54 Year
  Sex: Female

DRUGS (2)
  1. VIMOVO [Suspect]
     Active Substance: ESOMEPRAZOLE MAGNESIUM\NAPROXEN
     Indication: SYSTEMIC LUPUS ERYTHEMATOSUS
     Dosage: CUT IN HALF IF NECESSARY
     Dates: end: 20191130
  2. FLEXERIL [Concomitant]
     Active Substance: CYCLOBENZAPRINE HYDROCHLORIDE

REACTIONS (4)
  - Feeling abnormal [Unknown]
  - Wrong technique in product usage process [Unknown]
  - Pain [Unknown]
  - Off label use [Unknown]
